FAERS Safety Report 14937608 (Version 8)
Quarter: 2019Q4

REPORT INFORMATION
  Report Type: Report from Study
  Country: DE (occurrence: DE)
  Receive Date: 20180525
  Receipt Date: 20191129
  Transmission Date: 20200122
  Serious: Yes (Other)
  Sender: FDA-Public Use
  Company Number: PHHY2018DE003997

PATIENT
  Age: 32 Year
  Sex: Female
  Weight: 64 kg

DRUGS (9)
  1. CORTISONE [Concomitant]
     Active Substance: CORTISONE
     Indication: PRODUCT USED FOR UNKNOWN INDICATION
     Route: 065
  2. ILARIS [Suspect]
     Active Substance: CANAKINUMAB
     Dosage: 300 MG PER APPLICATION
     Route: 058
     Dates: start: 20190503
  3. ILARIS [Suspect]
     Active Substance: CANAKINUMAB
     Dosage: 300 MG PER APPLICATION
     Route: 058
     Dates: start: 20190509
  4. ILARIS [Suspect]
     Active Substance: CANAKINUMAB
     Dosage: 300 MG PER APPLICATION
     Route: 058
     Dates: start: 20190118
  5. ILARIS [Suspect]
     Active Substance: CANAKINUMAB
     Dosage: 300 MG PER APPLICATION
     Route: 058
     Dates: start: 20191023
  6. ILARIS [Suspect]
     Active Substance: CANAKINUMAB
     Indication: MUCKLE-WELLS SYNDROME
     Dosage: 300 MG PER APPLICATION
     Route: 058
     Dates: start: 20171115
  7. ILARIS [Suspect]
     Active Substance: CANAKINUMAB
     Dosage: 300 MG PER APPLICATION
     Route: 058
     Dates: start: 20171206
  8. ILARIS [Suspect]
     Active Substance: CANAKINUMAB
     Dosage: 300 MG PER APPLICATION
     Route: 058
     Dates: start: 20180216
  9. ILARIS [Suspect]
     Active Substance: CANAKINUMAB
     Dosage: 300 MG PER APPLICATION
     Route: 058
     Dates: start: 20190530

REACTIONS (17)
  - Pneumonia [Recovered/Resolved]
  - Infection [Unknown]
  - Dysarthria [Not Recovered/Not Resolved]
  - Pyelitis [Recovered/Resolved]
  - Animal bite [Not Recovered/Not Resolved]
  - Abdominal pain lower [Recovered/Resolved]
  - Tooth infection [Recovered/Resolved]
  - Gait disturbance [Not Recovered/Not Resolved]
  - Vasculitis [Recovered/Resolved]
  - Vasospasm [Recovered/Resolved]
  - Abdominal pain [Recovered/Resolved]
  - Pyelitis [Recovered/Resolved]
  - Cellulitis [Recovered/Resolved]
  - Abdominal pain [Recovered/Resolved]
  - Fall [Recovered/Resolved]
  - Intracranial pressure increased [Not Recovered/Not Resolved]
  - Syncope [Recovered/Resolved]

NARRATIVE: CASE EVENT DATE: 20171128
